FAERS Safety Report 10232400 (Version 1)
Quarter: 2014Q2

REPORT INFORMATION
  Report Type: Spontaneous
  Country: US (occurrence: None)
  Receive Date: 20140611
  Receipt Date: 20140611
  Transmission Date: 20141212
  Serious: Yes (Hospitalization)
  Sender: FDA-Public Use
  Company Number: None

PATIENT
  Age: 66 Year
  Sex: Male
  Weight: 88.9 kg

DRUGS (9)
  1. XARELTO [Suspect]
     Indication: TRANSIENT ISCHAEMIC ATTACK
     Route: 048
  2. XARELTO [Suspect]
     Indication: ATRIAL FIBRILLATION
     Route: 048
  3. MULTIPLE VITAMINS-MINERALS [Concomitant]
  4. ACETAMINOPHEN [Concomitant]
  5. ATORVASTATIN [Concomitant]
  6. CHOLECALCIFEROL (VITAMIN D) [Concomitant]
  7. FLUTICASONE-SALMETEROL (ADVAIR DISKUS) [Concomitant]
  8. METOPROLOL SUCCINATE (TOPROL XL) [Concomitant]
  9. PANTOPRAZOLE EC (PROTONIX) [Concomitant]

REACTIONS (3)
  - Convulsion [None]
  - Haemolytic uraemic syndrome [None]
  - Thrombotic thrombocytopenic purpura [None]
